FAERS Safety Report 13155723 (Version 1)
Quarter: 2017Q1

REPORT INFORMATION
  Report Type: Spontaneous
  Country: US (occurrence: US)
  Receive Date: 20170126
  Receipt Date: 20170126
  Transmission Date: 20170428
  Serious: Yes (Life-Threatening, Other)
  Sender: FDA-Public Use
  Company Number: US-ROCHE-1014255

PATIENT
  Sex: Female

DRUGS (2)
  1. VALIUM [Suspect]
     Active Substance: DIAZEPAM
     Indication: THERAPY CHANGE
     Route: 048
  2. VALIUM [Suspect]
     Active Substance: DIAZEPAM
     Dosage: DOSE REDUCED BY 1 MG
     Route: 065

REACTIONS (4)
  - Suicide attempt [Recovering/Resolving]
  - Suicidal ideation [Unknown]
  - Retching [Not Recovered/Not Resolved]
  - Withdrawal syndrome [Unknown]
